FAERS Safety Report 5322366-0 (Version None)
Quarter: 2007Q2

REPORT INFORMATION
  Report Type: 
  Country: None (occurrence: None)
  Receive Date: 20070511
  Receipt Date: 20070507
  Transmission Date: 20071010
  Serious: Yes (Life-Threatening)
  Sender: FDA-Public Use
  Company Number: AU-ASTRAZENECA-2007AP01329

PATIENT
  Age: 24782 Day
  Sex: Male

DRUGS (1)
  1. NAROPIN [Suspect]
     Indication: NERVE BLOCK
     Route: 053
     Dates: start: 20070226, end: 20070226

REACTIONS (4)
  - ASTHENIA [None]
  - BLEPHAROSPASM [None]
  - SOMNOLENCE [None]
  - TRANSIENT ISCHAEMIC ATTACK [None]
